FAERS Safety Report 6022407-1 (Version None)
Quarter: 2008Q4

REPORT INFORMATION
  Report Type: 
  Country: None (occurrence: None)
  Receive Date: 20081223
  Receipt Date: 20081223
  Transmission Date: 20090506
  Serious: No
  Sender: FDA-Public Use
  Company Number: None

PATIENT
  Age: 51 Year
  Sex: Male

DRUGS (4)
  1. PROVENTIL-HFA [Suspect]
     Indication: ASTHMA
     Dosage: 2 PUFFS FOUR TIMES A DAY
     Route: 055
     Dates: start: 20071201, end: 20080222
  2. PROVENTIL-HFA [Suspect]
     Indication: ASTHMA
     Dosage: 2 PUFFS FOUR TIMES A DAY
     Route: 055
     Dates: start: 20080522, end: 20080714
  3. ADVAIR DISKUS 100/50 [Concomitant]
  4. FLUTICASONE PROP NSL SPR [Concomitant]

REACTIONS (2)
  - DEVICE MALFUNCTION [None]
  - PRODUCT QUALITY ISSUE [None]
